FAERS Safety Report 13918550 (Version 1)
Quarter: 2017Q3

REPORT INFORMATION
  Report Type: Spontaneous
  Country: FR (occurrence: FR)
  Receive Date: 20170829
  Receipt Date: 20170829
  Transmission Date: 20171127
  Serious: Yes (Hospitalization)
  Sender: FDA-Public Use
  Company Number: FR-EXELIXIS-CABO-17010289

PATIENT
  Age: 64 Year
  Sex: Male

DRUGS (5)
  1. ZANEXTRA [Concomitant]
     Active Substance: ENALAPRIL MALEATE\LERCANIDIPINE HYDROCHLORIDE
  2. CABOMETYX [Suspect]
     Active Substance: CABOZANTINIB S-MALATE
     Indication: RENAL CANCER
     Dosage: UNK
     Dates: start: 201612, end: 201707
  3. KERLONE [Concomitant]
     Active Substance: BETAXOLOL HYDROCHLORIDE
  4. LEVOTHYROX [Concomitant]
     Active Substance: LEVOTHYROXINE
  5. CRESTOR [Concomitant]
     Active Substance: ROSUVASTATIN CALCIUM

REACTIONS (2)
  - Pulmonary embolism [Not Recovered/Not Resolved]
  - Arteriosclerosis [Not Recovered/Not Resolved]

NARRATIVE: CASE EVENT DATE: 20170712
